FAERS Safety Report 21687145 (Version 3)
Quarter: 2022Q4

REPORT INFORMATION
  Report Type: Spontaneous
  Country: AU (occurrence: AU)
  Receive Date: 20221206
  Receipt Date: 20221222
  Transmission Date: 20230113
  Serious: Yes (Hospitalization, Other)
  Sender: FDA-Public Use
  Company Number: AU-SA-2022SA488892

PATIENT
  Age: 20 Year
  Sex: Female

DRUGS (15)
  1. ONDANSETRON HYDROCHLORIDE [Suspect]
     Active Substance: ONDANSETRON HYDROCHLORIDE
     Indication: Hyperemesis gravidarum
     Dosage: 24 MG, QD
  2. METOCLOPRAMIDE HYDROCHLORIDE [Suspect]
     Active Substance: METOCLOPRAMIDE HYDROCHLORIDE
     Indication: Hyperemesis gravidarum
     Dosage: 30 MG, QD
  3. PROCHLORPERAZINE [Suspect]
     Active Substance: PROCHLORPERAZINE
     Indication: Vomiting
     Dosage: 12.5 MG, Q12H
     Route: 042
  4. PROCHLORPERAZINE [Suspect]
     Active Substance: PROCHLORPERAZINE
     Indication: Hyperemesis gravidarum
  5. DOXYLAMINE SUCCINATE [Suspect]
     Active Substance: DOXYLAMINE SUCCINATE
     Indication: Hyperemesis gravidarum
     Dosage: 50 MG, QD
  6. OMEPRAZOLE [Suspect]
     Active Substance: OMEPRAZOLE
     Indication: Hyperemesis gravidarum
     Dosage: 20 MG, QD
  7. HYDROCORTISONE [Suspect]
     Active Substance: HYDROCORTISONE
     Indication: Oculogyric crisis
     Dosage: UNK
     Route: 042
  8. HYDROCORTISONE [Suspect]
     Active Substance: HYDROCORTISONE
     Indication: Akathisia
  9. THIAMINE HYDROCHLORIDE [Suspect]
     Active Substance: THIAMINE HYDROCHLORIDE
     Indication: Akathisia
     Dosage: UNK
  10. THIAMINE HYDROCHLORIDE [Suspect]
     Active Substance: THIAMINE HYDROCHLORIDE
     Indication: Oculogyric crisis
  11. PREDNISOLONE [Suspect]
     Active Substance: PREDNISOLONE
     Indication: Oculogyric crisis
     Dosage: UNK
     Route: 048
  12. PREDNISOLONE [Suspect]
     Active Substance: PREDNISOLONE
     Indication: Akathisia
  13. DEXCHLORPHENIRAMINE [Suspect]
     Active Substance: DEXCHLORPHENIRAMINE
     Indication: Oculogyric crisis
     Dosage: UNK
     Route: 048
  14. DEXCHLORPHENIRAMINE [Suspect]
     Active Substance: DEXCHLORPHENIRAMINE
     Indication: Akathisia
  15. PYRIDOXINE [Suspect]
     Active Substance: PYRIDOXINE
     Indication: Hyperemesis gravidarum
     Dosage: 50 MG, QD

REACTIONS (12)
  - Akathisia [Recovered/Resolved]
  - Disturbance in attention [Recovered/Resolved]
  - Restlessness [Recovered/Resolved]
  - Anxiety [Recovered/Resolved]
  - Agitation [Recovered/Resolved]
  - Hyperreflexia [Recovered/Resolved]
  - Reduced facial expression [Recovered/Resolved]
  - Hypertonia [Recovered/Resolved]
  - Oculogyric crisis [Recovered/Resolved]
  - Gaze palsy [Recovered/Resolved]
  - Vision blurred [Recovered/Resolved]
  - Exposure during pregnancy [Unknown]
